FAERS Safety Report 9695142 (Version 1)
Quarter: 2013Q4

REPORT INFORMATION
  Report Type: Report from Study
  Country: US (occurrence: US)
  Receive Date: 20131119
  Receipt Date: 20131119
  Transmission Date: 20140711
  Serious: Yes (Death)
  Sender: FDA-Public Use
  Company Number: US-ROCHE-1306232

PATIENT
  Age: 68 Year
  Sex: Female

DRUGS (1)
  1. XELODA [Suspect]
     Indication: GALLBLADDER CANCER
     Dosage: 3 TABLETS TWICE A DAY 5 D ON 2 D OFF WHILE ON RADI
     Route: 048

REACTIONS (1)
  - Death [Fatal]
